FAERS Safety Report 12921473 (Version 1)
Quarter: 2016Q4

REPORT INFORMATION
  Report Type: Spontaneous
  Country: US (occurrence: US)
  Receive Date: 20161108
  Receipt Date: 20161108
  Transmission Date: 20170207
  Serious: No
  Sender: FDA-Public Use
  Company Number: US-GLAXOSMITHKLINE-US2016162516

PATIENT
  Sex: Female

DRUGS (1)
  1. VOLTAREN [Suspect]
     Active Substance: DICLOFENAC SODIUM
     Indication: SKIN DISORDER
     Dosage: UNK

REACTIONS (6)
  - Application site vesicles [Unknown]
  - Application site swelling [Unknown]
  - Adverse event [Unknown]
  - Drug administered at inappropriate site [Unknown]
  - Application site reaction [Unknown]
  - Off label use [Unknown]
